FAERS Safety Report 15336294 (Version 3)
Quarter: 2018Q4

REPORT INFORMATION
  Report Type: Spontaneous
  Country: US (occurrence: US)
  Receive Date: 20180830
  Receipt Date: 20181017
  Transmission Date: 20190204
  Serious: Yes (Hospitalization)
  Sender: FDA-Public Use
  Company Number: US-ACTELION-A-NJ2018-177673

PATIENT
  Age: 76 Year
  Sex: Female

DRUGS (24)
  1. WARFARIN [Concomitant]
     Active Substance: WARFARIN
  2. ATORVASTATIN [Concomitant]
     Active Substance: ATORVASTATIN
  3. MECLIZINE [Concomitant]
     Active Substance: MECLIZINE HYDROCHLORIDE
  4. DILTIAZEM. [Concomitant]
     Active Substance: DILTIAZEM
  5. PANTOPRAZOLE [Concomitant]
     Active Substance: PANTOPRAZOLE
  6. FERROUS SULFATE. [Concomitant]
     Active Substance: FERROUS SULFATE
  7. ROPINIROLE. [Concomitant]
     Active Substance: ROPINIROLE
  8. TRAMADOL. [Concomitant]
     Active Substance: TRAMADOL
  9. ATENOLOL. [Concomitant]
     Active Substance: ATENOLOL
  10. AMLODIPINE [Concomitant]
     Active Substance: AMLODIPINE BESYLATE
  11. METOPROL XL [Concomitant]
  12. DOK [Concomitant]
     Active Substance: DOCUSATE SODIUM
  13. CHLORTHALIDON [Concomitant]
  14. PROAIR HFA [Concomitant]
     Active Substance: ALBUTEROL SULFATE
  15. POTASSIUM CHLORIDE. [Concomitant]
     Active Substance: POTASSIUM CHLORIDE
  16. FURSEMIDE [Concomitant]
     Active Substance: FUROSEMIDE
  17. ELIQUIS [Concomitant]
     Active Substance: APIXABAN
  18. CARTIA XT [Concomitant]
     Active Substance: DILTIAZEM HYDROCHLORIDE
  19. SPIRONOLACTONE. [Concomitant]
     Active Substance: SPIRONOLACTONE
  20. LOSARTAN POTASSIUM. [Concomitant]
     Active Substance: LOSARTAN POTASSIUM
  21. OPSUMIT [Suspect]
     Active Substance: MACITENTAN
     Indication: PULMONARY ARTERIAL HYPERTENSION
     Dosage: 10 MG, QD
     Route: 048
     Dates: start: 20180720
  22. SILDENAFIL. [Concomitant]
     Active Substance: SILDENAFIL
  23. NITROGLYCERIN. [Concomitant]
     Active Substance: NITROGLYCERIN
  24. ONDANSETRON [Concomitant]
     Active Substance: ONDANSETRON

REACTIONS (8)
  - Hospitalisation [Unknown]
  - Dyspnoea [Unknown]
  - Paranasal sinus hypersecretion [Unknown]
  - Dyspepsia [Unknown]
  - Nausea [Unknown]
  - Product dose omission [Unknown]
  - Vomiting [Unknown]
  - Product distribution issue [Unknown]

NARRATIVE: CASE EVENT DATE: 20180909
